FAERS Safety Report 9698902 (Version 1)
Quarter: 2013Q4

REPORT INFORMATION
  Report Type: Report from Study
  Country: ES (occurrence: ES)
  Receive Date: 20131120
  Receipt Date: 20131120
  Transmission Date: 20140711
  Serious: Yes (Death)
  Sender: FDA-Public Use
  Company Number: ES-SA-2013SA117971

PATIENT
  Age: 74 Year
  Sex: Male

DRUGS (6)
  1. SEGURIL [Suspect]
     Indication: CARDIAC FAILURE
     Route: 048
     Dates: start: 201303, end: 20130318
  2. SEGURIL [Interacting]
     Indication: CARDIAC FAILURE
     Route: 048
     Dates: end: 201303
  3. HYDROCHLOROTHIAZIDE [Interacting]
     Indication: CARDIAC FAILURE
     Route: 048
     Dates: end: 20130318
  4. EPLERENONE [Interacting]
     Indication: CARDIAC FAILURE
     Route: 048
     Dates: end: 20130318
  5. DOLAK [Concomitant]
     Indication: CARDIAC FAILURE
     Route: 048
     Dates: end: 20130318
  6. HYDRALAZINE [Concomitant]
     Indication: CARDIAC FAILURE
     Route: 048
     Dates: end: 20130318

REACTIONS (3)
  - Renal failure chronic [Fatal]
  - Drug interaction [Unknown]
  - Hyponatraemia [Fatal]
